FAERS Safety Report 15156905 (Version 1)
Quarter: 2018Q3

REPORT INFORMATION
  Report Type: Spontaneous
  Country: FR (occurrence: FR)
  Receive Date: 20180718
  Receipt Date: 20180718
  Transmission Date: 20181010
  Serious: Yes (Hospitalization)
  Sender: FDA-Public Use
  Company Number: FR-TEVA-2018-FR-927201

PATIENT
  Age: 90 Year
  Sex: Female
  Weight: 60 kg

DRUGS (8)
  1. DIFFU K [Concomitant]
     Active Substance: POTASSIUM CHLORIDE
     Indication: MINERAL SUPPLEMENTATION
     Dosage: 1200 MILLIGRAM DAILY;
     Route: 048
     Dates: end: 20180531
  2. ENALAPRIL (MALEATE D^) [Suspect]
     Active Substance: ENALAPRIL MALEATE
     Indication: HYPERTENSION
     Dosage: 10 MILLIGRAM DAILY;
     Route: 048
     Dates: end: 20180531
  3. VERATRAN 5 MG, COMPRIM? [Concomitant]
     Indication: PRODUCT USED FOR UNKNOWN INDICATION
     Dosage: 1 DOSAGE FORMS DAILY;
     Route: 048
     Dates: end: 20180531
  4. AMOXICILLINE [Concomitant]
     Active Substance: AMOXICILLIN
     Indication: PRODUCT USED FOR UNKNOWN INDICATION
     Dosage: 2 GRAM DAILY;
     Route: 048
     Dates: end: 20180531
  5. HEMIGOXINE NATIVELLE 0,125 MG, COMPRIM? [Interacting]
     Active Substance: DIGOXIN
     Indication: ATRIAL FIBRILLATION
     Dosage: 1 EXCEPT TUESDAY AND WEDNESDAY
     Route: 048
     Dates: end: 20180531
  6. FUROSEMIDE. [Concomitant]
     Active Substance: FUROSEMIDE
     Dosage: 500 MILLIGRAM DAILY;
     Route: 048
     Dates: end: 20180531
  7. NEBIVOLOL. [Interacting]
     Active Substance: NEBIVOLOL
     Indication: HYPERTENSION
     Dosage: 5 MILLIGRAM DAILY;
     Route: 048
     Dates: end: 20180531
  8. FUROSEMIDE. [Concomitant]
     Active Substance: FUROSEMIDE
     Indication: CHRONIC KIDNEY DISEASE
     Route: 048
     Dates: end: 20180531

REACTIONS (3)
  - Drug interaction [Unknown]
  - Atrioventricular block complete [Recovered/Resolved]
  - Acute kidney injury [Unknown]

NARRATIVE: CASE EVENT DATE: 20180531
